FAERS Safety Report 8163218-0 (Version None)
Quarter: 2012Q1

REPORT INFORMATION
  Report Type: 
  Country: None (occurrence: None)
  Receive Date: 20120224
  Receipt Date: 20110615
  Transmission Date: 20120608
  Serious: No
  Sender: FDA-Public Use
  Company Number: US-PFIZER INC-K201100723

PATIENT
  Age: 77 Year
  Sex: Female
  Weight: 65.306 kg

DRUGS (8)
  1. HYDROCHLOROTHIAZIDE [Concomitant]
     Dosage: UNK
  2. JANUMET [Concomitant]
     Dosage: UNK
  3. FLECTOR [Suspect]
     Indication: ARTHRALGIA
     Dosage: 1 PATCH, QD
     Route: 061
     Dates: start: 20110101
  4. COREG [Concomitant]
     Dosage: UNK
  5. ADALAT [Concomitant]
     Dosage: UNK
  6. SYNTHROID [Concomitant]
     Dosage: UNK
  7. PLAVIX [Concomitant]
     Dosage: UNK
  8. MOTRIN [Concomitant]
     Dosage: UNK

REACTIONS (3)
  - DIARRHOEA [None]
  - NAUSEA [None]
  - DRUG EFFECT DECREASED [None]
